FAERS Safety Report 8189881-6 (Version None)
Quarter: 2012Q1

REPORT INFORMATION
  Report Type: 
  Country: None (occurrence: None)
  Receive Date: 20120307
  Receipt Date: 20120224
  Transmission Date: 20120608
  Serious: Yes (Other)
  Sender: FDA-Public Use
  Company Number: US-SANOFI-AVENTIS-2012SA012728

PATIENT
  Age: 44 Year
  Sex: Female

DRUGS (6)
  1. ALLEGRA [Suspect]
     Route: 048
  2. FEXOFENADINE HYDROCHLORIDE [Concomitant]
  3. ALLEGRA [Suspect]
     Route: 048
  4. CLARITIN [Concomitant]
  5. CLARINEX /USA/ [Concomitant]
  6. ALLEGRA-D 12 HOUR [Suspect]
     Indication: NASAL CONGESTION

REACTIONS (6)
  - DYSPNOEA [None]
  - BRONCHITIS [None]
  - RESPIRATORY DISORDER [None]
  - LARYNGITIS [None]
  - UPPER-AIRWAY COUGH SYNDROME [None]
  - ASTHMA [None]
